FAERS Safety Report 13820475 (Version 2)
Quarter: 2017Q3

REPORT INFORMATION
  Report Type: Spontaneous
  Country: IT (occurrence: IT)
  Receive Date: 20170801
  Receipt Date: 20170815
  Transmission Date: 20171127
  Serious: Yes (Hospitalization, Other)
  Sender: FDA-Public Use
  Company Number: IT-MYLANLABS-2017M1045151

PATIENT

DRUGS (2)
  1. CARDICOR [Concomitant]
     Active Substance: BISOPROLOL
     Indication: HYPERTENSION
     Dosage: 1.25 MG, UNK
     Route: 048
     Dates: end: 20170630
  2. RYTMONORM 70 MG/20 ML SOLUZIONE INIETTABILE PER USO ENDOVENOSO [Suspect]
     Active Substance: PROPAFENONE HYDROCHLORIDE
     Indication: CARDIAC FIBRILLATION
     Dosage: 140 MG TOTAL
     Route: 040
     Dates: start: 20170630, end: 20170630

REACTIONS (5)
  - Hypotension [Recovered/Resolved]
  - Cold sweat [Recovered/Resolved]
  - Sinus bradycardia [Recovered/Resolved]
  - Sinoatrial block [Recovered/Resolved]
  - Retching [Recovered/Resolved]

NARRATIVE: CASE EVENT DATE: 20170630
